FAERS Safety Report 13442887 (Version 4)
Quarter: 2017Q4

REPORT INFORMATION
  Report Type: Report from Study
  Country: JP (occurrence: JP)
  Receive Date: 20170414
  Receipt Date: 20171113
  Transmission Date: 20180320
  Serious: Yes (Death, Life-Threatening)
  Sender: FDA-Public Use
  Company Number: JP-B.I. PHARMACEUTICALS,INC./RIDGEFIELD-2017-NB-002018

PATIENT
  Age: 81 Year
  Sex: Female

DRUGS (1)
  1. PRAZAXA [Suspect]
     Active Substance: DABIGATRAN ETEXILATE MESYLATE
     Indication: ATRIAL FIBRILLATION
     Route: 048
     Dates: start: 20131128, end: 20170410

REACTIONS (5)
  - Multiple organ dysfunction syndrome [Fatal]
  - Activated partial thromboplastin time prolonged [Not Recovered/Not Resolved]
  - Lower gastrointestinal haemorrhage [Fatal]
  - Creatinine renal clearance decreased [Not Recovered/Not Resolved]
  - Shock haemorrhagic [Fatal]

NARRATIVE: CASE EVENT DATE: 20170411
